FAERS Safety Report 25972209 (Version 1)
Quarter: 2025Q4

REPORT INFORMATION
  Report Type: Spontaneous
  Country: TR (occurrence: TR)
  Receive Date: 20251029
  Receipt Date: 20251029
  Transmission Date: 20260117
  Serious: Yes (Hospitalization)
  Sender: Alora Pharma
  Company Number: TR-AVION PHARMACEUTICALS-2025ALO02564

PATIENT
  Age: 27 Year
  Sex: Female

DRUGS (2)
  1. PONSTEL [Suspect]
     Active Substance: MEFENAMIC ACID
     Indication: Musculoskeletal pain
     Dosage: 1000 MG, 2X/DAY
     Route: 065
  2. UNSPECIFIED INGREDIENT [Concomitant]
     Active Substance: UNSPECIFIED INGREDIENT
     Indication: Musculoskeletal pain
     Route: 065

REACTIONS (3)
  - Neurotoxicity [Recovered/Resolved]
  - Thrombotic thrombocytopenic purpura [Recovered/Resolved]
  - Metabolic acidosis [Recovered/Resolved]
